FAERS Safety Report 12441163 (Version 1)
Quarter: 2016Q2

REPORT INFORMATION
  Report Type: Spontaneous
  Country: GB (occurrence: GB)
  Receive Date: 20160607
  Receipt Date: 20160607
  Transmission Date: 20160815
  Serious: Yes (Hospitalization)
  Sender: FDA-Public Use
  Company Number: GB-ROCHE-1769657

PATIENT
  Age: 71 Year
  Sex: Male

DRUGS (13)
  1. CAPECITABINE. [Suspect]
     Active Substance: CAPECITABINE
     Indication: PRODUCT USED FOR UNKNOWN INDICATION
     Route: 065
     Dates: start: 20160429
  2. CISPLATIN. [Suspect]
     Active Substance: CISPLATIN
     Indication: PRODUCT USED FOR UNKNOWN INDICATION
     Dosage: 50MG/50ML
     Route: 065
     Dates: start: 20160429
  3. PARACETAMOL [Concomitant]
     Active Substance: ACETAMINOPHEN
     Route: 065
  4. SIMVASTATIN. [Concomitant]
     Active Substance: SIMVASTATIN
     Dosage: 40MG ON
     Route: 065
  5. BENDROFLUMETHIAZIDE [Suspect]
     Active Substance: BENDROFLUMETHIAZIDE
     Indication: PRODUCT USED FOR UNKNOWN INDICATION
     Route: 065
     Dates: end: 20160513
  6. ADCAL-D3 [Concomitant]
     Active Substance: CALCIUM CARBONATE\CHOLECALCIFEROL
     Dosage: I BD
     Route: 065
  7. RAMIPRIL. [Suspect]
     Active Substance: RAMIPRIL
     Indication: PRODUCT USED FOR UNKNOWN INDICATION
     Route: 065
     Dates: end: 20160513
  8. ALLOPURINOL. [Concomitant]
     Active Substance: ALLOPURINOL
     Dosage: 300MG OD
     Route: 065
  9. LACTULOSE. [Concomitant]
     Active Substance: LACTULOSE
     Route: 065
  10. EPIRUBICIN [Suspect]
     Active Substance: EPIRUBICIN
     Indication: PRODUCT USED FOR UNKNOWN INDICATION
     Dosage: 100MG/50ML
     Route: 065
     Dates: start: 20160429
  11. CODEINE [Concomitant]
     Active Substance: CODEINE
     Route: 065
  12. SENNA [Concomitant]
     Active Substance: SENNA LEAF\SENNOSIDES\SENNOSIDES A AND B
     Route: 065
  13. OMEPRAZOLE. [Concomitant]
     Active Substance: OMEPRAZOLE
     Dosage: 40MG OD
     Route: 065

REACTIONS (10)
  - Hyponatraemia [Unknown]
  - Pulmonary embolism [Unknown]
  - Pyrexia [Unknown]
  - Acute kidney injury [Recovered/Resolved]
  - Neutropenic sepsis [Recovered/Resolved]
  - Hypokalaemia [Unknown]
  - Pleuritic pain [Unknown]
  - Lethargy [Unknown]
  - Rash vesicular [Recovered/Resolved]
  - Generalised erythema [Unknown]

NARRATIVE: CASE EVENT DATE: 20160513
